FAERS Safety Report 24880956 (Version 1)
Quarter: 2025Q1

REPORT INFORMATION
  Report Type: Spontaneous
  Country: US (occurrence: US)
  Receive Date: 20250124
  Receipt Date: 20250124
  Transmission Date: 20250409
  Serious: No
  Sender: ROCHE
  Company Number: US-ROCHE-10000188587

PATIENT
  Sex: Male

DRUGS (2)
  1. VABYSMO [Suspect]
     Active Substance: FARICIMAB-SVOA
     Indication: Retinal vein occlusion
     Route: 031
  2. OZURDEX [Concomitant]
     Active Substance: DEXAMETHASONE
     Indication: Retinal vein occlusion

REACTIONS (2)
  - Eye swelling [Unknown]
  - Off label use [Unknown]
